FAERS Safety Report 13814800 (Version 1)
Quarter: 2017Q3

REPORT INFORMATION
  Report Type: Spontaneous
  Country: US (occurrence: US)
  Receive Date: 20170731
  Receipt Date: 20170731
  Transmission Date: 20171127
  Serious: Yes (Death)
  Sender: FDA-Public Use
  Company Number: None

PATIENT
  Age: 70 Year
  Sex: Male
  Weight: 88 kg

DRUGS (2)
  1. ASPIRIN 81 MG [Suspect]
     Active Substance: ASPIRIN
     Indication: ISCHAEMIC STROKE
     Dosage: 81 MG PO/CHEW
     Route: 048
  2. APIXABAN [Suspect]
     Active Substance: APIXABAN
     Indication: ISCHAEMIC STROKE
     Route: 048

REACTIONS (7)
  - Ventricular tachycardia [None]
  - Chest pain [None]
  - Headache [None]
  - Dizziness [None]
  - Ventricular fibrillation [None]
  - Atrial flutter [None]
  - Palpitations [None]

NARRATIVE: CASE EVENT DATE: 20170711
